FAERS Safety Report 8846248 (Version 1)
Quarter: 2012Q4

REPORT INFORMATION
  Report Type: 
  Country: BR (occurrence: BR)
  Receive Date: 20121017
  Receipt Date: 20121017
  Transmission Date: 20130627
  Serious: Yes (Other)
  Sender: FDA-Public Use
  Company Number: BR-AMGEN-BRASP2012065728

PATIENT
  Age: 65 Year
  Sex: Female
  Weight: 67 kg

DRUGS (4)
  1. ENBREL [Suspect]
     Indication: RHEUMATOID ARTHRITIS
     Dosage: 50 mg, weekly
     Route: 058
     Dates: start: 201109, end: 20121001
  2. DIAMICRON [Concomitant]
     Indication: DIABETES MELLITUS
     Dosage: UNK
     Dates: start: 2006
  3. GLIFAGE [Concomitant]
     Indication: DIABETES MELLITUS
     Dosage: UNK
     Dates: start: 2006
  4. METHOTREXATE [Concomitant]
     Indication: ARTHRITIS
     Dosage: UNK
     Dates: start: 200606

REACTIONS (3)
  - Radius fracture [Unknown]
  - Fall [Unknown]
  - Bronchitis [Unknown]
